FAERS Safety Report 22129017 (Version 1)
Quarter: 2023Q1

REPORT INFORMATION
  Report Type: Report from Study
  Country: US (occurrence: None)
  Receive Date: 20230323
  Receipt Date: 20230323
  Transmission Date: 20230417
  Serious: Yes (Other)
  Sender: FDA-Public Use
  Company Number: 2023A063274

PATIENT
  Age: 82 Year
  Sex: Female
  Weight: 57.6 kg

DRUGS (1)
  1. TAGRISSO [Suspect]
     Active Substance: OSIMERTINIB
     Indication: Lung neoplasm malignant
     Route: 048
     Dates: start: 2019

REACTIONS (5)
  - Vocal cord paralysis [Unknown]
  - Aphonia [Unknown]
  - Diarrhoea [Unknown]
  - Nail disorder [Unknown]
  - Off label use [Unknown]

NARRATIVE: CASE EVENT DATE: 20190101
